FAERS Safety Report 10227221 (Version 1)
Quarter: 2014Q2

REPORT INFORMATION
  Report Type: Spontaneous
  Country: FR (occurrence: FR)
  Receive Date: 20140610
  Receipt Date: 20140610
  Transmission Date: 20141212
  Serious: Yes (Hospitalization)
  Sender: FDA-Public Use
  Company Number: FR-AMGEN-FRASP2014041560

PATIENT
  Age: 87 Year
  Sex: Male

DRUGS (11)
  1. PROLIA [Suspect]
     Indication: PRODUCT USED FOR UNKNOWN INDICATION
     Dosage: 60 MG, UNK
     Route: 065
     Dates: start: 20140423
  2. PLAVIX [Concomitant]
     Dosage: 75 MG, UNK
  3. LERCAN [Concomitant]
     Dosage: 20 MG, UNK
  4. PRAZOSINE [Concomitant]
     Dosage: 5 MG, UNK
  5. IRBESARTAN [Concomitant]
     Dosage: 75 MG, UNK
  6. TRAMADOL [Concomitant]
     Dosage: 100 UNK, UNK
  7. FUROSEMIDE [Concomitant]
     Dosage: 40 UNK, UNK
  8. LYRICA [Concomitant]
     Dosage: 25 UNK, UNK
  9. TADENAN [Concomitant]
  10. FORLAX                             /00754501/ [Concomitant]
  11. CRESTOR [Concomitant]
     Dosage: 10 UNK, UNK

REACTIONS (1)
  - Ischaemic stroke [Unknown]
